FAERS Safety Report 21526086 (Version 1)
Quarter: 2022Q4

REPORT INFORMATION
  Report Type: Spontaneous
  Country: JP (occurrence: JP)
  Receive Date: 20221031
  Receipt Date: 20221031
  Transmission Date: 20230113
  Serious: Yes (Other)
  Sender: FDA-Public Use
  Company Number: JP-MSNLABS-2022MSNLIT01297

PATIENT

DRUGS (3)
  1. ROSUVASTATIN [Suspect]
     Active Substance: ROSUVASTATIN
     Indication: Xanthomatosis
     Route: 065
  2. PROBUCOL [Concomitant]
     Active Substance: PROBUCOL
     Dosage: PER DAY
     Route: 065
  3. CHENODEOXYCHOLIC ACID [Concomitant]
     Route: 065

REACTIONS (1)
  - Drug ineffective [Unknown]
